FAERS Safety Report 6859102-2 (Version None)
Quarter: 2010Q3

REPORT INFORMATION
  Report Type: 
  Country: None (occurrence: None)
  Receive Date: 20100719
  Receipt Date: 20080411
  Transmission Date: 20110219
  Serious: No
  Sender: FDA-Public Use
  Company Number: US-PFIZER INC-2008017155

PATIENT
  Sex: Female
  Weight: 108.9 kg

DRUGS (12)
  1. CHANTIX [Suspect]
     Indication: SMOKING CESSATION THERAPY
     Dates: start: 20080201
  2. ALL OTHER THERAPEUTIC PRODUCTS [Suspect]
  3. PREVACID [Concomitant]
  4. FELODIPINE [Concomitant]
  5. COLCHICINE [Concomitant]
     Indication: GOUT
  6. PRAVASTATIN [Concomitant]
  7. DIOVAN HCT [Concomitant]
  8. LORAZEPAM [Concomitant]
  9. VICODIN [Concomitant]
  10. ALLOPURINOL [Concomitant]
  11. CYMBALTA [Concomitant]
  12. METFORMIN HCL [Concomitant]

REACTIONS (4)
  - ABDOMINAL PAIN UPPER [None]
  - HYPERHIDROSIS [None]
  - INAPPROPRIATE SCHEDULE OF DRUG ADMINISTRATION [None]
  - NAUSEA [None]
